FAERS Safety Report 25517653 (Version 2)
Quarter: 2025Q3

REPORT INFORMATION
  Report Type: Spontaneous
  Country: PE (occurrence: PE)
  Receive Date: 20250704
  Receipt Date: 20250715
  Transmission Date: 20251020
  Serious: Yes (Death, Hospitalization)
  Sender: TEVA
  Company Number: PE-TEVA-VS-3348424

PATIENT
  Age: 76 Year
  Sex: Male
  Weight: 54 kg

DRUGS (5)
  1. CLINDAMYCIN [Suspect]
     Active Substance: CLINDAMYCIN
     Indication: Sepsis
     Route: 042
  2. Glimepiride metformin [Concomitant]
     Indication: Type 2 diabetes mellitus
     Route: 065
  3. DILTIAZEM [Suspect]
     Active Substance: DILTIAZEM
     Indication: Hypertension
     Route: 065
  4. CEFTRIAXONE [Suspect]
     Active Substance: CEFTRIAXONE
     Indication: Sepsis
     Route: 042
  5. METFORMIN\VILDAGLIPTIN [Suspect]
     Active Substance: METFORMIN\VILDAGLIPTIN
     Indication: Type 2 diabetes mellitus
     Route: 065

REACTIONS (2)
  - Drug ineffective [Fatal]
  - Pemphigoid [Unknown]
